FAERS Safety Report 8522269 (Version 2)
Quarter: 2012Q4

REPORT INFORMATION
  Report Type: 
  Country: FR (occurrence: FR)
  Receive Date: 20120419
  Receipt Date: 20121023
  Transmission Date: 20130627
  Serious: Yes (Other)
  Sender: FDA-Public Use
  Company Number: FR-PFIZER INC-2012094322

PATIENT
  Age: 40 Year
  Sex: Female

DRUGS (3)
  1. EFFEXOR LP [Suspect]
     Indication: MAJOR DEPRESSION
     Dosage: 75 mg, 1x/day
     Route: 048
     Dates: start: 201105, end: 201208
  2. XANAX [Concomitant]
     Route: 048
  3. ZOLPIDEM [Concomitant]
     Route: 048

REACTIONS (2)
  - Genital haemorrhage [Recovering/Resolving]
  - Condition aggravated [Recovering/Resolving]
